FAERS Safety Report 9838466 (Version 1)
Quarter: 2013Q4

REPORT INFORMATION
  Report Type: Spontaneous
  Country: US (occurrence: None)
  Receive Date: 20131206
  Receipt Date: 20131206
  Transmission Date: 20140711
  Serious: Yes (Other)
  Sender: FDA-Public Use
  Company Number: 373997

PATIENT
  Age: 11 Year
  Sex: Male

DRUGS (2)
  1. NOVOLOG FLEXPEN [Suspect]
     Indication: TYPE 1 DIABETES MELLITUS
     Dosage: UNK, SUBCUTANEOUS
     Route: 058
  2. NOVOFINE (NEEDLE) N/A [Concomitant]

REACTIONS (4)
  - Device malfunction [None]
  - Blood ketone body increased [None]
  - Blood glucose increased [None]
  - Blood glucose fluctuation [None]
